FAERS Safety Report 8614475-5 (Version None)
Quarter: 2012Q3

REPORT INFORMATION
  Report Type: 
  Country: None (occurrence: None)
  Receive Date: 20120823
  Receipt Date: 20120815
  Transmission Date: 20120928
  Serious: Yes (Hospitalization, Other)
  Sender: FDA-Public Use
  Company Number: PHHY2011AU116320

PATIENT
  Sex: Female

DRUGS (1)
  1. ZOLEDRONOC ACID [Suspect]
     Dosage: 5 MG, UNK
     Dates: start: 20090604

REACTIONS (4)
  - PNEUMONIA [None]
  - TOOTH ABSCESS [None]
  - GINGIVAL SWELLING [None]
  - NASOPHARYNGITIS [None]
